FAERS Safety Report 12128138 (Version 5)
Quarter: 2021Q1

REPORT INFORMATION
  Report Type: Spontaneous
  Country: US (occurrence: US)
  Receive Date: 20160229
  Receipt Date: 20210311
  Transmission Date: 20210419
  Serious: Yes (Other)
  Sender: FDA-Public Use
  Company Number: US-PFIZER INC-2016123430

PATIENT
  Age: 60 Year
  Sex: Male
  Weight: 75.75 kg

DRUGS (3)
  1. LYRICA [Suspect]
     Active Substance: PREGABALIN
     Indication: NERVE INJURY
     Dosage: 300 MG, 2X/DAY
     Route: 048
  2. LYRICA [Suspect]
     Active Substance: PREGABALIN
     Indication: MOVEMENT DISORDER
     Dosage: 300 MG, DAILY
  3. TRAMADOL. [Suspect]
     Active Substance: TRAMADOL
     Indication: ARTHRALGIA
     Dosage: 50 MG, 2X/DAY
     Route: 048

REACTIONS (11)
  - Insomnia [Unknown]
  - Nausea [Unknown]
  - Anxiety [Unknown]
  - Product dose omission issue [Unknown]
  - Headache [Unknown]
  - Diarrhoea [Unknown]
  - Pain in extremity [Unknown]
  - Nasal congestion [Not Recovered/Not Resolved]
  - Hyperhidrosis [Unknown]
  - Neoplasm malignant [Unknown]
  - Condition aggravated [Unknown]
